FAERS Safety Report 12389990 (Version 1)
Quarter: 2016Q2

REPORT INFORMATION
  Report Type: Spontaneous
  Country: FR (occurrence: FR)
  Receive Date: 20160520
  Receipt Date: 20160520
  Transmission Date: 20160815
  Serious: Yes (Other)
  Sender: FDA-Public Use
  Company Number: FR-SA-2016SA093689

PATIENT
  Sex: Female

DRUGS (2)
  1. SOLU-MEDROL [Concomitant]
     Active Substance: METHYLPREDNISOLONE SODIUM SUCCINATE
     Dosage: INITIALLY 5 G PLANNED AND AFTERWARDS HALF FOR 2 DAYS THAN 1 G FOR 2 DAYS
  2. AUBAGIO [Suspect]
     Active Substance: TERIFLUNOMIDE
     Indication: MULTIPLE SCLEROSIS
     Route: 065
     Dates: start: 201509

REACTIONS (24)
  - Pain [Unknown]
  - Occipital neuralgia [Unknown]
  - Sensory loss [Unknown]
  - Asthenia [Unknown]
  - Cognitive disorder [Unknown]
  - Band sensation [Unknown]
  - Hyperaesthesia [Unknown]
  - Irritability [Unknown]
  - Back pain [Unknown]
  - Dysphagia [Unknown]
  - Hypokinesia [Unknown]
  - Balance disorder [Unknown]
  - Bladder disorder [Unknown]
  - Dizziness [Unknown]
  - Visual acuity reduced [Unknown]
  - Body temperature abnormal [Unknown]
  - Chest discomfort [Unknown]
  - Speech disorder [Unknown]
  - Fatigue [Unknown]
  - Diplopia [Unknown]
  - Logorrhoea [Unknown]
  - Malaise [Unknown]
  - Trigeminal neuralgia [Unknown]
  - Paraesthesia [Unknown]
